FAERS Safety Report 19529406 (Version 1)
Quarter: 2021Q3

REPORT INFORMATION
  Report Type: Spontaneous
  Country: DE (occurrence: DE)
  Receive Date: 20210713
  Receipt Date: 20210713
  Transmission Date: 20211014
  Serious: Yes (Hospitalization)
  Sender: FDA-Public Use
  Company Number: DE-DRREDDYS-SPO/GER/21/0137500

PATIENT
  Age: 74 Year
  Sex: Female
  Weight: 90 kg

DRUGS (9)
  1. ASS DEXCEL 100MG [Concomitant]
     Indication: PRODUCT USED FOR UNKNOWN INDICATION
  2. VIGANTOLETTEN 1000I.E. [Concomitant]
     Active Substance: CHOLECALCIFEROL
     Indication: PRODUCT USED FOR UNKNOWN INDICATION
  3. PREDNISOLON 5MG GALEN [Concomitant]
     Indication: PRODUCT USED FOR UNKNOWN INDICATION
  4. SPIRO COMP.?RATIOPHARM 50MG/20MG [Concomitant]
     Active Substance: FUROSEMIDE\SPIRONOLACTONE
     Indication: PRODUCT USED FOR UNKNOWN INDICATION
     Dosage: 20|50 MG, 2?0?0?0, TABLETTEN
  5. METOPROLOL. [Suspect]
     Active Substance: METOPROLOL
     Indication: PRODUCT USED FOR UNKNOWN INDICATION
  6. METAMIZOL [Concomitant]
     Active Substance: METAMIZOLE SODIUM
     Indication: PRODUCT USED FOR UNKNOWN INDICATION
  7. CANDESARTAN?BIOMO 16MG [Concomitant]
     Indication: PRODUCT USED FOR UNKNOWN INDICATION
  8. RISPERIDON [Suspect]
     Active Substance: RISPERIDONE
     Indication: PRODUCT USED FOR UNKNOWN INDICATION
     Dosage: 0.25 MG, 1?0?2?0, DRAGEES
  9. BETAHISTIN STADA 12MG [Concomitant]
     Indication: PRODUCT USED FOR UNKNOWN INDICATION

REACTIONS (4)
  - Bradycardia [Unknown]
  - Product administration error [Unknown]
  - Hypertension [Unknown]
  - Product administration error [Unknown]

NARRATIVE: CASE EVENT DATE: 20210421
